FAERS Safety Report 24741074 (Version 3)
Quarter: 2024Q4

REPORT INFORMATION
  Report Type: Report from Study
  Country: US (occurrence: US)
  Receive Date: 20241217
  Receipt Date: 20241224
  Transmission Date: 20250115
  Serious: Yes (Other)
  Sender: ABBVIE
  Company Number: US-ABBVIE-6046547

PATIENT
  Age: 49 Year
  Sex: Male

DRUGS (1)
  1. SKYRIZI [Suspect]
     Active Substance: RISANKIZUMAB-RZAA
     Indication: Psoriasis
     Route: 058

REACTIONS (4)
  - Prostate cancer [Unknown]
  - Device difficult to use [Not Recovered/Not Resolved]
  - Device leakage [Unknown]
  - Device dispensing error [Unknown]

NARRATIVE: CASE EVENT DATE: 20241001
